FAERS Safety Report 8807151 (Version 1)
Quarter: 2012Q4

REPORT INFORMATION
  Report Type: 
  Country: CA (occurrence: CA)
  Receive Date: 20120925
  Receipt Date: 20120925
  Transmission Date: 20130627
  Serious: Yes (Other)
  Sender: FDA-Public Use
  Company Number: CA-JUTA-2012-16029

PATIENT
  Age: 61 Year
  Sex: Female

DRUGS (2)
  1. METFORMIN HYDROCHLORIDE [Suspect]
     Indication: DIABETES MELLITUS
     Dosage: 1000 mg, bid
     Route: 048
     Dates: start: 20120907, end: 20120907
  2. METFORMIN HYDROCHLORIDE [Suspect]
     Dosage: 500 mg, bid
     Route: 048
     Dates: start: 20120913

REACTIONS (1)
  - Swelling face [Recovering/Resolving]
